FAERS Safety Report 23766609 (Version 1)
Quarter: 2024Q2

REPORT INFORMATION
  Report Type: Spontaneous
  Country: US (occurrence: US)
  Receive Date: 20240422
  Receipt Date: 20240422
  Transmission Date: 20240716
  Serious: Yes (Hospitalization, Other)
  Sender: FDA-Public Use
  Company Number: US-ENDO PHARMACEUTICALS INC-2024-001725

PATIENT
  Age: 30 Year
  Sex: Female

DRUGS (1)
  1. PITOCIN [Suspect]
     Active Substance: OXYTOCIN
     Indication: Product used for unknown indication
     Dosage: 125 ML/HR, INFUSION (30 UNITS/ 500 ML)
     Route: 041

REACTIONS (2)
  - Atrial fibrillation [Recovered/Resolved]
  - Maternal exposure during pregnancy [Recovered/Resolved]
